FAERS Safety Report 7727396-7 (Version None)
Quarter: 2011Q3

REPORT INFORMATION
  Report Type: 
  Country: None (occurrence: None)
  Receive Date: 20110902
  Receipt Date: 20110831
  Transmission Date: 20111222
  Serious: Yes (Hospitalization)
  Sender: FDA-Public Use
  Company Number: IT-AMGEN-ITASP2011039232

PATIENT
  Age: 72 Year
  Sex: Female

DRUGS (10)
  1. PREDNISONE [Concomitant]
  2. LANOXIN [Concomitant]
  3. CORDARONE [Concomitant]
  4. NPLATE [Suspect]
     Dosage: UNK
  5. ESOPRAL                            /01479302/ [Concomitant]
  6. POTASSIUM CHLORIDE [Concomitant]
  7. LASIX [Concomitant]
  8. NITRODERM MATRIX [Concomitant]
  9. NPLATE [Suspect]
     Indication: AUTOIMMUNE THROMBOCYTOPENIA
     Dosage: UNK UNK, QWK
     Route: 058
     Dates: start: 20110501, end: 20110719
  10. DURAGESIC-100 [Concomitant]

REACTIONS (1)
  - DEEP VEIN THROMBOSIS [None]
